FAERS Safety Report 14953822 (Version 3)
Quarter: 2018Q2

REPORT INFORMATION
  Report Type: Spontaneous
  Country: BR (occurrence: BR)
  Receive Date: 20180530
  Receipt Date: 20180618
  Transmission Date: 20180711
  Serious: Yes (Death, Hospitalization, Disabling, Other)
  Sender: FDA-Public Use
  Company Number: BR-BAYER-2018-098632

PATIENT
  Age: 87 Year
  Sex: Male

DRUGS (1)
  1. ASPIRIN. [Suspect]
     Active Substance: ASPIRIN
     Indication: CORONARY ARTERY DISEASE
     Dosage: 100 MG, QD
     Route: 048
     Dates: start: 20170828

REACTIONS (6)
  - Pneumonia aspiration [None]
  - Depressed level of consciousness [Fatal]
  - Craniocerebral injury [Fatal]
  - Acute kidney injury [Fatal]
  - Unresponsive to stimuli [None]
  - Subdural haemorrhage [Fatal]

NARRATIVE: CASE EVENT DATE: 20180307
